FAERS Safety Report 24567974 (Version 1)
Quarter: 2024Q4

REPORT INFORMATION
  Report Type: Spontaneous
  Country: IL (occurrence: IL)
  Receive Date: 20241031
  Receipt Date: 20241031
  Transmission Date: 20250115
  Serious: Yes (Other)
  Sender: MERCK
  Company Number: IL-009507513-2410ISR011679

PATIENT
  Age: 75 Year
  Sex: Male

DRUGS (6)
  1. ONCOTICE [Suspect]
     Active Substance: BACILLUS CALMETTE-GUERIN SUBSTRAIN TICE LIVE ANTIGEN
     Indication: Bladder cancer
  2. AMLODIPINE [Concomitant]
     Active Substance: AMLODIPINE BESYLATE
  3. ATORVASTATIN CALCIUM TRIHYDRATE [Concomitant]
     Active Substance: ATORVASTATIN CALCIUM TRIHYDRATE
  4. ATENOLOL [Concomitant]
     Active Substance: ATENOLOL
  5. OMEPRAZOLE [Concomitant]
     Active Substance: OMEPRAZOLE
  6. TAMSULOSIN HYDROCHLORIDE [Concomitant]
     Active Substance: TAMSULOSIN HYDROCHLORIDE

REACTIONS (6)
  - Transurethral bladder resection [Unknown]
  - Transurethral prostatectomy [Unknown]
  - Urinary retention [Unknown]
  - Cystitis glandularis [Unknown]
  - Therapy non-responder [Unknown]
  - Incorrect dose administered [Unknown]
